FAERS Safety Report 8107599-2 (Version None)
Quarter: 2012Q1

REPORT INFORMATION
  Report Type: 
  Country: None (occurrence: None)
  Receive Date: 20120202
  Receipt Date: 20120130
  Transmission Date: 20120608
  Serious: Yes (Hospitalization)
  Sender: FDA-Public Use
  Company Number: US-PFIZER INC-2011312004

PATIENT
  Sex: Female

DRUGS (3)
  1. LYRICA [Suspect]
     Dosage: 75 MG, 2X/DAY
  2. LYRICA [Suspect]
     Dosage: 150 MG, 2X/DAY
  3. LYRICA [Suspect]
     Dosage: 150 MG, 1X/DAY

REACTIONS (6)
  - IRRITABILITY [None]
  - NYSTAGMUS [None]
  - NAUSEA [None]
  - DIZZINESS [None]
  - VERTIGO [None]
  - VOMITING [None]
